FAERS Safety Report 6542467-9 (Version None)
Quarter: 2010Q1

REPORT INFORMATION
  Report Type: 
  Country: None (occurrence: None)
  Receive Date: 20100119
  Receipt Date: 20100111
  Transmission Date: 20100710
  Serious: Yes (Life-Threatening)
  Sender: FDA-Public Use
  Company Number: GB-TEVA-221105ISR

PATIENT
  Age: 4 Week
  Sex: Female

DRUGS (1)
  1. SERTRALINE HCL [Suspect]
     Route: 063

REACTIONS (2)
  - DRUG EXPOSURE DURING PREGNANCY [None]
  - SUPRAVENTRICULAR TACHYCARDIA [None]
